FAERS Safety Report 8061233-9 (Version None)
Quarter: 2012Q1

REPORT INFORMATION
  Report Type: 
  Country: None (occurrence: None)
  Receive Date: 20120120
  Receipt Date: 20110718
  Transmission Date: 20120608
  Serious: No
  Sender: FDA-Public Use
  Company Number: US-ALLERGAN-1109668US

PATIENT
  Age: 60 Year
  Sex: Female

DRUGS (3)
  1. RESTASIS [Suspect]
     Indication: DRY EYE
     Dosage: 1 GTT, BID
     Route: 047
     Dates: start: 20110603
  2. MAXITROL OINTMENT [Concomitant]
     Indication: EYE INFLAMMATION
     Dosage: UNK
     Route: 061
     Dates: start: 20110603
  3. ARTIFICIAL TEARS                   /00445101/ [Concomitant]
     Dosage: UNK
     Route: 047

REACTIONS (1)
  - EYE IRRITATION [None]
